FAERS Safety Report 15859201 (Version 5)
Quarter: 2019Q2

REPORT INFORMATION
  Report Type: Report from Study
  Country: US (occurrence: US)
  Receive Date: 20190123
  Receipt Date: 20190515
  Transmission Date: 20190711
  Serious: No
  Sender: FDA-Public Use
  Company Number: US-ALEXION PHARMACEUTICALS INC.-A201900962

PATIENT
  Age: 49 Year
  Sex: Female

DRUGS (1)
  1. SOLIRIS [Suspect]
     Active Substance: ECULIZUMAB
     Indication: MYASTHENIA GRAVIS
     Dosage: 1200 MG, UNK
     Route: 065
     Dates: start: 20190117

REACTIONS (8)
  - Fatigue [Unknown]
  - Dyspnoea [Unknown]
  - Headache [Unknown]
  - Condition aggravated [Unknown]
  - Drug ineffective [Unknown]
  - Nausea [Unknown]
  - Stress [Unknown]
  - Asthenopia [Unknown]

NARRATIVE: CASE EVENT DATE: 20190118
